FAERS Safety Report 8156334-0 (Version None)
Quarter: 2012Q1

REPORT INFORMATION
  Report Type: 
  Country: None (occurrence: None)
  Receive Date: 20120222
  Receipt Date: 20111115
  Transmission Date: 20120608
  Serious: No
  Sender: FDA-Public Use
  Company Number: US-BRISTOL-MYERS SQUIBB COMPANY-16202368

PATIENT
  Age: 39 Year
  Sex: Female

DRUGS (1)
  1. KENALOG-10 [Suspect]
     Indication: PSORIASIS
     Dosage: RECEIVING UNDER THE SKIN

REACTIONS (1)
  - MEDICATION ERROR [None]
